FAERS Safety Report 9475188 (Version 1)
Quarter: 2013Q3

REPORT INFORMATION
  Report Type: Spontaneous
  Country: US (occurrence: US)
  Receive Date: 20130825
  Receipt Date: 20130825
  Transmission Date: 20140515
  Serious: Yes (Other)
  Sender: FDA-Public Use
  Company Number: US-BRISTOL-MYERS SQUIBB COMPANY-19193846

PATIENT
  Age: 60 Year
  Sex: Female
  Weight: 116.55 kg

DRUGS (12)
  1. BYETTA [Suspect]
     Indication: DIABETES MELLITUS
     Dosage: 5 UNITS?2010 OR 2011
     Route: 058
     Dates: start: 2010
  2. METFORMIN HCL [Suspect]
     Indication: DIABETES MELLITUS
     Route: 048
     Dates: start: 2005
  3. CRESTOR [Suspect]
     Indication: BLOOD CHOLESTEROL
     Dosage: INITIALLY DOSE REDUCED AND THEN INTRPTD
     Route: 048
  4. NEXIUM [Suspect]
     Indication: GASTROOESOPHAGEAL REFLUX DISEASE
     Dosage: REDUCED TO ONCE DAILY
     Route: 048
     Dates: start: 2002
  5. ATENOLOL [Suspect]
     Indication: MIGRAINE
     Dosage: DOSE REDUCED TO 25MG
     Route: 048
  6. ATENOLOL [Suspect]
     Indication: BLOOD PRESSURE
     Dosage: DOSE REDUCED TO 25MG
     Route: 048
  7. LISINOPRIL [Suspect]
     Dates: start: 2006
  8. ASPIRIN [Concomitant]
     Route: 048
  9. LOSARTAN [Concomitant]
     Indication: BLOOD PRESSURE
     Route: 048
     Dates: start: 2012
  10. STEROIDS [Concomitant]
     Indication: PSORIASIS
     Route: 061
  11. LASIX [Concomitant]
     Indication: FLUID RETENTION
     Route: 048
  12. ZANTAC [Concomitant]
     Indication: GASTROOESOPHAGEAL REFLUX DISEASE
     Route: 048

REACTIONS (7)
  - Mycosis fungoides [Not Recovered/Not Resolved]
  - Hiatus hernia [Unknown]
  - Cough [Recovered/Resolved]
  - Psoriasis [Not Recovered/Not Resolved]
  - Psoriatic arthropathy [Not Recovered/Not Resolved]
  - Fluid retention [Unknown]
  - Blood pressure increased [Unknown]
